FAERS Safety Report 15107103 (Version 17)
Quarter: 2020Q4

REPORT INFORMATION
  Report Type: Spontaneous
  Country: US (occurrence: US)
  Receive Date: 20180704
  Receipt Date: 20201125
  Transmission Date: 20210113
  Serious: Yes (Hospitalization, Other)
  Sender: FDA-Public Use
  Company Number: US-PFIZER INC-2018269465

PATIENT
  Age: 71 Year
  Sex: Female

DRUGS (7)
  1. BOSULIF [Suspect]
     Active Substance: BOSUTINIB MONOHYDRATE
     Dosage: 200 MG, DAILY
     Route: 048
     Dates: start: 20180628
  2. HYDROCHLOROTHIAZIDE. [Concomitant]
     Active Substance: HYDROCHLOROTHIAZIDE
     Dosage: 12.5 MG
  3. BOSULIF [Suspect]
     Active Substance: BOSUTINIB MONOHYDRATE
     Indication: CHRONIC MYELOID LEUKAEMIA
     Dosage: 200 MG, DAILY (AT 2PM WITH FOOD)
     Route: 048
     Dates: start: 20180626, end: 201806
  4. BOSULIF [Suspect]
     Active Substance: BOSUTINIB MONOHYDRATE
     Dosage: 200 MG, 1X/DAY (WITH FOOD AND PLENTY OF WATER)
     Route: 048
     Dates: end: 20191016
  5. PREDNISONE. [Concomitant]
     Active Substance: PREDNISONE
     Indication: INJURY
     Dosage: UNK, DAILY (PREDNISONE 4 MG, 21 PILLS DECREASING DOSE EVERY DAY)
  6. CARVEDILOL. [Concomitant]
     Active Substance: CARVEDILOL
     Dosage: UNK (3.125)
  7. BOSULIF [Suspect]
     Active Substance: BOSUTINIB MONOHYDRATE
     Dosage: 200 MG, 1X/DAY (WITH FOOD AND PLENTY OF WATER)
     Route: 048

REACTIONS (22)
  - Nephritis [Recovering/Resolving]
  - Dyspnoea [Unknown]
  - Blood pressure abnormal [Unknown]
  - Renal disorder [Recovered/Resolved]
  - Heart rate decreased [Unknown]
  - Insomnia [Unknown]
  - Pancreatic disorder [Unknown]
  - Loss of consciousness [Unknown]
  - Headache [Unknown]
  - Abdominal pain upper [Unknown]
  - Nerve compression [Unknown]
  - Heart rate increased [Unknown]
  - Blood creatinine increased [Unknown]
  - Early satiety [Unknown]
  - Pain [Unknown]
  - Diarrhoea [Recovered/Resolved]
  - Myalgia [Unknown]
  - Dizziness postural [Unknown]
  - Blood pressure increased [Unknown]
  - Cervical spinal stenosis [Unknown]
  - Dizziness [Unknown]
  - Dysgeusia [Recovered/Resolved]

NARRATIVE: CASE EVENT DATE: 2018
